FAERS Safety Report 19647985 (Version 1)
Quarter: 2021Q3

REPORT INFORMATION
  Report Type: Spontaneous
  Country: AT (occurrence: AT)
  Receive Date: 20210803
  Receipt Date: 20210803
  Transmission Date: 20211014
  Serious: Yes (Death, Hospitalization, Other)
  Sender: FDA-Public Use
  Company Number: AT-AMGEN-AUTSP2021115263

PATIENT

DRUGS (26)
  1. ETOPOSIDE. [Concomitant]
     Active Substance: ETOPOSIDE
     Indication: CHRONIC MYELOID LEUKAEMIA
  2. MITOXANTRONE [Concomitant]
     Active Substance: MITOXANTRONE HYDROCHLORIDE
     Indication: CHRONIC MYELOID LEUKAEMIA
  3. CARFILZOMIB [Suspect]
     Active Substance: CARFILZOMIB
     Indication: PLASMA CELL MYELOMA
     Dosage: UNK
     Route: 065
  4. CYCLOPHOSPHAMIDE. [Concomitant]
     Active Substance: CYCLOPHOSPHAMIDE
     Indication: ACUTE LYMPHOCYTIC LEUKAEMIA
  5. IMATINIB. [Concomitant]
     Active Substance: IMATINIB MESYLATE
     Indication: ACUTE LYMPHOCYTIC LEUKAEMIA
     Dosage: UNK
  6. VINCRISTINE [Concomitant]
     Active Substance: VINCRISTINE
     Indication: ACUTE LYMPHOCYTIC LEUKAEMIA
     Dosage: UNK
  7. PREDNISONE. [Concomitant]
     Active Substance: PREDNISONE
     Indication: ACUTE LYMPHOCYTIC LEUKAEMIA
     Dosage: UNK
  8. BLEOMYCIN [Concomitant]
     Active Substance: BLEOMYCIN SULFATE
     Indication: HODGKIN^S DISEASE
     Dosage: UNK
  9. VINBLASTINE [Concomitant]
     Active Substance: VINBLASTINE
     Indication: HODGKIN^S DISEASE
     Dosage: UNK
  10. ETOPOSIDE. [Concomitant]
     Active Substance: ETOPOSIDE
     Indication: ACUTE MYELOID LEUKAEMIA
     Dosage: UNK
  11. RETINOIC ACID [Concomitant]
     Active Substance: TRETINOIN
     Indication: ACUTE MYELOID LEUKAEMIA
     Dosage: UNK
  12. DOXORUBICIN [Concomitant]
     Active Substance: DOXORUBICIN
     Indication: ACUTE LYMPHOCYTIC LEUKAEMIA
     Dosage: UNK
  13. DACARBAZINE. [Concomitant]
     Active Substance: DACARBAZINE
     Indication: HODGKIN^S DISEASE
     Dosage: UNK
  14. RITUXIMAB. [Concomitant]
     Active Substance: RITUXIMAB
     Indication: ACUTE LYMPHOCYTIC LEUKAEMIA
     Dosage: UNK
     Route: 065
  15. DAUNORUBICIN [Concomitant]
     Active Substance: DAUNORUBICIN
     Indication: CHRONIC MYELOID LEUKAEMIA
  16. CYTOSINE ARABINOSIDE [Concomitant]
     Active Substance: CYTARABINE
     Indication: CHRONIC MYELOID LEUKAEMIA
  17. FLUDARABINE [Concomitant]
     Active Substance: FLUDARABINE PHOSPHATE
     Indication: CHRONIC MYELOID LEUKAEMIA
  18. MITOXANTRONE [Concomitant]
     Active Substance: MITOXANTRONE HYDROCHLORIDE
     Indication: ACUTE MYELOID LEUKAEMIA
     Dosage: UNK
  19. RETINOIC ACID [Concomitant]
     Active Substance: TRETINOIN
     Indication: CHRONIC MYELOID LEUKAEMIA
  20. IDARUBICIN [Concomitant]
     Active Substance: IDARUBICIN
     Indication: CHRONIC MYELOID LEUKAEMIA
  21. FLUDARABINE [Concomitant]
     Active Substance: FLUDARABINE PHOSPHATE
     Indication: ACUTE MYELOID LEUKAEMIA
     Dosage: UNK
  22. BORTEZOMIB. [Concomitant]
     Active Substance: BORTEZOMIB
     Indication: ACUTE LYMPHOCYTIC LEUKAEMIA
     Dosage: UNK
  23. DAUNORUBICIN [Concomitant]
     Active Substance: DAUNORUBICIN
     Indication: ACUTE MYELOID LEUKAEMIA
     Dosage: UNK
  24. FILGRASTIM [Suspect]
     Active Substance: FILGRASTIM
     Indication: PRODUCT USED FOR UNKNOWN INDICATION
     Dosage: UNK
     Route: 065
  25. CYTOSINE ARABINOSIDE [Concomitant]
     Active Substance: CYTARABINE
     Indication: ACUTE MYELOID LEUKAEMIA
     Dosage: UNK
  26. IDARUBICIN [Concomitant]
     Active Substance: IDARUBICIN
     Indication: ACUTE MYELOID LEUKAEMIA
     Dosage: UNK

REACTIONS (13)
  - Acute respiratory failure [Unknown]
  - Sepsis [Fatal]
  - Acute myocardial infarction [Unknown]
  - Plasma cell myeloma [Fatal]
  - Chronic obstructive pulmonary disease [Fatal]
  - Acute kidney injury [Unknown]
  - Nervous system disorder [Unknown]
  - Cardiogenic shock [Unknown]
  - Bone marrow failure [Fatal]
  - Haemorrhage [Unknown]
  - Tumour lysis syndrome [Unknown]
  - Thrombocytopenia [Unknown]
  - Septic shock [Unknown]
